FAERS Safety Report 10642625 (Version 1)
Quarter: 2014Q4

REPORT INFORMATION
  Report Type: Spontaneous
  Country: DE (occurrence: DE)
  Receive Date: 20141210
  Receipt Date: 20141210
  Transmission Date: 20150529
  Serious: Yes (Congenital Anomaly, Other)
  Sender: FDA-Public Use
  Company Number: DE-DRREDDYS-GER/GER/14/0044846

PATIENT
  Age: 1 Day
  Sex: Male
  Weight: 2.59 kg

DRUGS (2)
  1. LEVOTHYROXINE SODIUM. [Concomitant]
     Active Substance: LEVOTHYROXINE SODIUM
     Indication: PRODUCT USED FOR UNKNOWN INDICATION
     Route: 064
     Dates: start: 20131030, end: 20140806
  2. CITALOPRAM [Suspect]
     Active Substance: CITALOPRAM HYDROBROMIDE
     Indication: PRODUCT USED FOR UNKNOWN INDICATION
     Dosage: REDUCED TO 10MG/D IN 6TH MONTH
     Route: 064
     Dates: start: 20131108, end: 20140806

REACTIONS (8)
  - Bradycardia neonatal [Recovered/Resolved]
  - Electrocardiogram QT prolonged [Recovering/Resolving]
  - Neonatal infection [Recovered/Resolved]
  - Foetal exposure during pregnancy [Unknown]
  - Small for dates baby [Recovering/Resolving]
  - Atrial septal defect [Unknown]
  - Hypothermia neonatal [Recovered/Resolved]
  - Respiratory disorder neonatal [Unknown]

NARRATIVE: CASE EVENT DATE: 20140806
